FAERS Safety Report 7699312-8 (Version None)
Quarter: 2011Q3

REPORT INFORMATION
  Report Type: 
  Country: None (occurrence: None)
  Receive Date: 20110819
  Receipt Date: 20110811
  Transmission Date: 20111222
  Serious: Yes (Hospitalization, Other)
  Sender: FDA-Public Use
  Company Number: US-BAYER-2011-023869

PATIENT
  Age: 33 Year
  Sex: Female
  Weight: 58.05 kg

DRUGS (5)
  1. YASMIN [Suspect]
     Indication: PRODUCT USED FOR UNKNOWN INDICATION
     Dosage: UNK
     Dates: start: 20020201, end: 20050801
  2. IMITREX [Concomitant]
     Dosage: UNK UNK, PRN
  3. VERAPAMIL [Concomitant]
     Indication: MIGRAINE
     Dosage: 100 MG, BID
     Route: 048
  4. WARFARIN SODIUM [Concomitant]
  5. ELAVIL [Concomitant]
     Indication: MIGRAINE
     Dosage: 50 MG, HS

REACTIONS (4)
  - PAIN [None]
  - DEEP VEIN THROMBOSIS [None]
  - GENERAL PHYSICAL HEALTH DETERIORATION [None]
  - PULMONARY EMBOLISM [None]
